FAERS Safety Report 7442494-3 (Version None)
Quarter: 2011Q2

REPORT INFORMATION
  Report Type: 
  Country: None (occurrence: None)
  Receive Date: 20110425
  Receipt Date: 20110425
  Transmission Date: 20111010
  Serious: Yes (Life-Threatening, Hospitalization, Disabling, Other)
  Sender: FDA-Public Use
  Company Number: None

PATIENT
  Age: 51 Year
  Sex: Female

DRUGS (2)
  1. AMITRIPTYLINE HYDROCHORIDE [Suspect]
     Indication: SLEEP DISORDER
     Dosage: 1 BEDTIME PO
     Route: 048
     Dates: start: 20101102, end: 20110421
  2. SAVELLA [Suspect]
     Indication: SLEEP DISORDER
     Dosage: 1 BEDTIME PO
     Route: 048
     Dates: start: 20101118, end: 20110421

REACTIONS (6)
  - MEMORY IMPAIRMENT [None]
  - CRYING [None]
  - SELF INJURIOUS BEHAVIOUR [None]
  - FEELING ABNORMAL [None]
  - PAIN [None]
  - ACTIVITIES OF DAILY LIVING IMPAIRED [None]
